FAERS Safety Report 7484059-3 (Version None)
Quarter: 2011Q1

REPORT INFORMATION
  Report Type: 
  Country: None (occurrence: None)
  Receive Date: 20110309
  Receipt Date: 20101019
  Transmission Date: 20110831
  Serious: Yes (Hospitalization)
  Sender: FDA-Public Use
  Company Number: APP201000801

PATIENT
  Age: 3 Year
  Sex: Male

DRUGS (11)
  1. CYTARABINE [Suspect]
     Indication: ACUTE LYMPHOCYTIC LEUKAEMIA
     Dosage: INTRATHECAL, ONCE INTRATHECAL
     Route: 037
     Dates: start: 20100901, end: 20100901
  2. CYTARABINE [Suspect]
     Indication: ACUTE LYMPHOCYTIC LEUKAEMIA
     Dosage: INTRATHECAL, ONCE INTRATHECAL
     Route: 037
     Dates: start: 20100818, end: 20100818
  3. CYCLOPHOSPHAMIDE [Suspect]
     Indication: ACUTE LYMPHOCYTIC LEUKAEMIA
     Dosage: CYCLICAL, INTRAVENOUS
     Route: 042
     Dates: start: 20100501, end: 20100821
  4. VINCRISTINE SULFATE [Suspect]
     Indication: ACUTE LYMPHOCYTIC LEUKAEMIA
     Dosage: CYCLICAL, INTRAVENOUS
     Route: 042
     Dates: start: 20100527, end: 20100825
  5. PEG-L ASPARAGINASE (PEGASPARGASE) [Suspect]
     Indication: ACUTE LYMPHOCYTIC LEUKAEMIA
     Dosage: CYCLICAL, SUBCUTANEOUS
     Route: 058
     Dates: start: 20100501, end: 20100821
  6. DASATIMIB [Suspect]
     Indication: ACUTE LYMPHOCYTIC LEUKAEMIA
     Dosage: CYCLICAL, ORAL, DAILY, ORAL
     Route: 048
     Dates: start: 20100527
  7. DASATIMIB [Suspect]
     Indication: ACUTE LYMPHOCYTIC LEUKAEMIA
     Dosage: CYCLICAL, ORAL, DAILY, ORAL
     Route: 048
     Dates: start: 20100818
  8. HYDROCORTONE [Concomitant]
  9. DAUNORUBICIN HCL [Suspect]
     Indication: ACUTE LYMPHOCYTIC LEUKAEMIA
     Dosage: CYCLICAL, INTRAVENOUS
     Route: 042
     Dates: start: 20100527, end: 20100819
  10. METHOTREXATE [Suspect]
     Indication: ACUTE LYMPHOCYTIC LEUKAEMIA
     Dosage: CYCLICAL, INTRATHECAL, ONCE, INTRATHECAL
     Route: 037
     Dates: start: 20100901, end: 20100901
  11. METHOTREXATE [Suspect]
     Indication: ACUTE LYMPHOCYTIC LEUKAEMIA
     Dosage: CYCLICAL, INTRATHECAL, ONCE, INTRATHECAL
     Route: 037
     Dates: start: 20100818, end: 20100818

REACTIONS (4)
  - PLATELET COUNT DECREASED [None]
  - HAEMOGLOBIN DECREASED [None]
  - FEBRILE NEUTROPENIA [None]
  - GRANULOCYTE COUNT DECREASED [None]
